FAERS Safety Report 21292143 (Version 1)
Quarter: 2022Q3

REPORT INFORMATION
  Report Type: Report from Study
  Country: US (occurrence: US)
  Receive Date: 20220905
  Receipt Date: 20220905
  Transmission Date: 20221027
  Serious: Yes (Hospitalization, Other)
  Sender: FDA-Public Use
  Company Number: US-BRISTOL-MYERS SQUIBB COMPANY-2022-094674

PATIENT
  Age: 57 Year
  Sex: Male
  Weight: 98 kg

DRUGS (7)
  1. BELATACEPT [Suspect]
     Active Substance: BELATACEPT
     Indication: Lung transplant
     Dosage: FROM DAY 0 TO 84?VIA INTRAVENOUS PYELOGRAM
     Route: 065
     Dates: start: 20210115, end: 20210408
  2. BELATACEPT [Suspect]
     Active Substance: BELATACEPT
     Dosage: VIA INTRAVENOUS PYELOGRAM?DAY 112-140
     Route: 065
     Dates: start: 20210506, end: 20210603
  3. TACROLIMUS [Concomitant]
     Active Substance: TACROLIMUS
     Indication: Product used for unknown indication
  4. METHYLPREDNISOLONE SODIUM SUCCINATE [Concomitant]
     Active Substance: METHYLPREDNISOLONE SODIUM SUCCINATE
     Indication: Product used for unknown indication
     Route: 042
  5. METHYLPREDNISOLONE SODIUM SUCCINATE [Concomitant]
     Active Substance: METHYLPREDNISOLONE SODIUM SUCCINATE
     Route: 042
     Dates: start: 20210117, end: 202101
  6. METHYLPREDNISOLONE SODIUM SUCCINATE [Concomitant]
     Active Substance: METHYLPREDNISOLONE SODIUM SUCCINATE
     Route: 042
     Dates: start: 20210119
  7. PREDNISONE [Concomitant]
     Active Substance: PREDNISONE
     Indication: Product used for unknown indication

REACTIONS (3)
  - Haemothorax [Recovered/Resolved]
  - Deep vein thrombosis [Unknown]
  - Postoperative thoracic procedure complication [Unknown]

NARRATIVE: CASE EVENT DATE: 20210115
